FAERS Safety Report 25679774 (Version 1)
Quarter: 2025Q3

REPORT INFORMATION
  Report Type: Spontaneous
  Country: US (occurrence: US)
  Receive Date: 20250814
  Receipt Date: 20250814
  Transmission Date: 20251021
  Serious: No
  Sender: LEO PHARM
  Company Number: US-LEO Pharma-382100

PATIENT
  Age: 70 Year
  Sex: Female

DRUGS (1)
  1. ADBRY [Suspect]
     Active Substance: TRALOKINUMAB-LDRM
     Indication: Eczema

REACTIONS (4)
  - Arthralgia [Unknown]
  - Milia [Unknown]
  - Inappropriate schedule of product administration [Unknown]
  - Headache [Unknown]
